FAERS Safety Report 12648700 (Version 4)
Quarter: 2017Q1

REPORT INFORMATION
  Report Type: Spontaneous
  Country: US (occurrence: US)
  Receive Date: 20160812
  Receipt Date: 20170118
  Transmission Date: 20170428
  Serious: Yes (Hospitalization, Other)
  Sender: FDA-Public Use
  Company Number: US-PFIZER INC-2016356465

PATIENT
  Age: 64 Year
  Sex: Female
  Weight: 91 kg

DRUGS (4)
  1. VICODIN [Suspect]
     Active Substance: ACETAMINOPHEN\HYDROCODONE BITARTRATE
     Dosage: UNK
  2. VIMPAT [Suspect]
     Active Substance: LACOSAMIDE
     Dosage: 100 MG, UNK
  3. ADVIL [Suspect]
     Active Substance: IBUPROFEN
     Indication: HEADACHE
     Dosage: 400 MG IN THE MORNING AND 200 MG AT NIGHT
     Route: 048
     Dates: start: 201512
  4. ADVIL [Suspect]
     Active Substance: IBUPROFEN
     Indication: MUSCLE RELAXANT THERAPY
     Dosage: STARTED TAKING THE PRODUCT AT NIGHT REGULARLY
     Route: 048
     Dates: start: 201604

REACTIONS (15)
  - Heart rate increased [Unknown]
  - Therapeutic response unexpected [Unknown]
  - Pain [Unknown]
  - Drug effect incomplete [Unknown]
  - Headache [Not Recovered/Not Resolved]
  - Feeling of relaxation [Unknown]
  - Muscle spasms [Not Recovered/Not Resolved]
  - Head injury [Unknown]
  - Ligament sprain [Unknown]
  - Visual impairment [Not Recovered/Not Resolved]
  - Choking [Unknown]
  - Muscle tightness [Not Recovered/Not Resolved]
  - Dysphagia [Unknown]
  - Seizure [Recovered/Resolved]
  - Abdominal discomfort [Unknown]

NARRATIVE: CASE EVENT DATE: 1998
